FAERS Safety Report 12132484 (Version 1)
Quarter: 2016Q1

REPORT INFORMATION
  Report Type: Spontaneous
  Country: DK (occurrence: DK)
  Receive Date: 20160301
  Receipt Date: 20160301
  Transmission Date: 20160526
  Serious: Yes (Death)
  Sender: FDA-Public Use
  Company Number: DK-FRESENIUS KABI-FK201502244

PATIENT
  Age: 65 Year
  Sex: Male
  Weight: 80 kg

DRUGS (4)
  1. PANTOPRAZOLNATRIUMSESQUIHYDRAT [Concomitant]
     Indication: REFLUX GASTRITIS
     Dates: start: 201412
  2. OXALIPLATIN 5MG/ML CONCENTRATE FOR SOLUTION FOR INFUSION [Suspect]
     Active Substance: OXALIPLATIN
     Indication: OESOPHAGEAL ADENOCARCINOMA STAGE III
     Route: 042
     Dates: start: 20150102, end: 20150410
  3. HERCEPTIN [Suspect]
     Active Substance: TRASTUZUMAB
     Indication: OESOPHAGEAL ADENOCARCINOMA STAGE III
     Route: 042
     Dates: start: 20150102, end: 20150410
  4. CAPECITABINE ACTAVIS (CAPECITABINE) (CAPECITABINE) [Suspect]
     Active Substance: CAPECITABINE
     Indication: OESOPHAGEAL ADENOCARCINOMA STAGE III
     Route: 048
     Dates: start: 20150102, end: 20150410

REACTIONS (2)
  - Brain injury [Fatal]
  - Cardiac arrest [Fatal]

NARRATIVE: CASE EVENT DATE: 20150422
